FAERS Safety Report 5224537-0 (Version None)
Quarter: 2007Q1

REPORT INFORMATION
  Report Type: 
  Country: None (occurrence: None)
  Receive Date: 20070130
  Receipt Date: 20070123
  Transmission Date: 20070707
  Serious: Yes (Other)
  Sender: FDA-Public Use
  Company Number: US-PFIZER INC-2007006460

PATIENT
  Sex: Male
  Weight: 95.3 kg

DRUGS (12)
  1. XALATAN [Suspect]
     Indication: OPEN ANGLE GLAUCOMA
     Route: 031
  2. SYNTHROID [Concomitant]
  3. ACIPHEX [Concomitant]
  4. LITHIUM CARBONATE [Concomitant]
  5. BUPROPION HCL [Concomitant]
  6. MOBIC [Concomitant]
     Indication: KNEE ARTHROPLASTY
  7. TRICOR [Concomitant]
  8. TERAZOSIN [Concomitant]
  9. ALL OTHER THERAPEUTIC PRODUCTS [Concomitant]
     Indication: CHRONIC OBSTRUCTIVE PULMONARY DISEASE
  10. ALBUTEROL [Concomitant]
  11. COMBIVENT [Concomitant]
  12. ACETYLSALICYLIC ACID [Concomitant]

REACTIONS (1)
  - SWELLING FACE [None]
